FAERS Safety Report 8360060-2 (Version None)
Quarter: 2012Q2

REPORT INFORMATION
  Report Type: 
  Country: None (occurrence: None)
  Receive Date: 20120515
  Receipt Date: 20110517
  Transmission Date: 20120825
  Serious: No
  Sender: FDA-Public Use
  Company Number: US-ALEXION-A201100712

PATIENT
  Sex: Male

DRUGS (6)
  1. FLOMAX [Concomitant]
     Dosage: UNK QD
  2. MOTRIN [Concomitant]
     Dosage: UNK PRN
  3. ASCORBIC ACID [Concomitant]
     Dosage: UNK QD
  4. VICODIN [Concomitant]
     Dosage: UNK PRN
  5. SOLIRIS [Suspect]
     Indication: PAROXYSMAL NOCTURNAL HAEMOGLOBINURIA
     Dosage: 900 MG Q2W
     Route: 042
  6. WARFARIN SODIUM [Concomitant]
     Dosage: 9 MG QD

REACTIONS (1)
  - HAEMOGLOBIN DECREASED [None]
